FAERS Safety Report 7434638-4 (Version None)
Quarter: 2011Q2

REPORT INFORMATION
  Report Type: 
  Country: None (occurrence: None)
  Receive Date: 20110425
  Receipt Date: 20110415
  Transmission Date: 20111010
  Serious: Yes (Other)
  Sender: FDA-Public Use
  Company Number: AR-AMGEN-ARGSP2011020654

PATIENT
  Sex: Female

DRUGS (2)
  1. NAPROXEN [Suspect]
     Indication: PAIN
     Dosage: UNK
  2. ENBREL [Suspect]
     Indication: PRODUCT USED FOR UNKNOWN INDICATION
     Dosage: UNK
     Dates: start: 20100301

REACTIONS (5)
  - FLUID RETENTION [None]
  - BLOOD PRESSURE ABNORMAL [None]
  - OVERWEIGHT [None]
  - SWELLING [None]
  - ANAEMIA [None]
